FAERS Safety Report 7956960-5 (Version None)
Quarter: 2011Q4

REPORT INFORMATION
  Report Type: 
  Country: None (occurrence: None)
  Receive Date: 20111205
  Receipt Date: 20111122
  Transmission Date: 20120403
  Serious: No
  Sender: FDA-Public Use
  Company Number: US-BAYER-2011-113945

PATIENT
  Age: 27 Year
  Sex: Male
  Weight: 93 kg

DRUGS (2)
  1. ALEVE (CAPLET) [Suspect]
     Dosage: UNK
     Route: 048
     Dates: start: 20111121, end: 20111122
  2. TRAMADOL HCL [Concomitant]

REACTIONS (1)
  - NO ADVERSE EVENT [None]
